FAERS Safety Report 6813371-3 (Version None)
Quarter: 2010Q3

REPORT INFORMATION
  Report Type: 
  Country: None (occurrence: None)
  Receive Date: 20100701
  Receipt Date: 20100624
  Transmission Date: 20110219
  Serious: Yes (Hospitalization)
  Sender: FDA-Public Use
  Company Number: PHHO2010HU07277

PATIENT
  Sex: Female
  Weight: 73.9 kg

DRUGS (3)
  1. AFINITOR [Suspect]
     Indication: METASTATIC RENAL CELL CARCINOMA
     Dosage: 10 MG, DAILY
     Route: 048
     Dates: start: 20100106, end: 20100511
  2. BETA BLOCKING AGENTS [Concomitant]
  3. MEFORAL [Concomitant]
     Indication: DIABETES MELLITUS

REACTIONS (3)
  - HYPERGLYCAEMIA [None]
  - OEDEMA PERIPHERAL [None]
  - THROMBOSIS [None]
